FAERS Safety Report 25132759 (Version 1)
Quarter: 2025Q1

REPORT INFORMATION
  Report Type: Spontaneous
  Country: NZ (occurrence: NZ)
  Receive Date: 20250328
  Receipt Date: 20250328
  Transmission Date: 20250408
  Serious: Yes (Hospitalization, Other)
  Sender: NOVO NORDISK
  Company Number: NZ-NOVOPROD-1362217

PATIENT
  Age: 25 Year
  Sex: Female
  Weight: 89 kg

DRUGS (4)
  1. SAXENDA [Suspect]
     Active Substance: LIRAGLUTIDE
     Indication: Weight control
     Route: 058
     Dates: start: 202405
  2. SAXENDA [Suspect]
     Active Substance: LIRAGLUTIDE
     Route: 058
  3. SAXENDA [Suspect]
     Active Substance: LIRAGLUTIDE
     Route: 058
     Dates: end: 20250307
  4. METFORMIN [Concomitant]
     Active Substance: METFORMIN HYDROCHLORIDE
     Indication: Insulin resistance

REACTIONS (7)
  - Constipation [Recovered/Resolved]
  - Spinal cord injury cauda equina [Unknown]
  - Nausea [Recovered/Resolved]
  - Vomiting [Recovered/Resolved]
  - Diarrhoea [Recovered/Resolved]
  - Irritable bowel syndrome [Unknown]
  - Urinary incontinence [Unknown]

NARRATIVE: CASE EVENT DATE: 20240801
